FAERS Safety Report 13771337 (Version 4)
Quarter: 2018Q1

REPORT INFORMATION
  Report Type: Report from Study
  Country: US (occurrence: US)
  Receive Date: 20170720
  Receipt Date: 20180327
  Transmission Date: 20180508
  Serious: Yes (Hospitalization, Other)
  Sender: FDA-Public Use
  Company Number: US-BIOGEN-2017BI00432925

PATIENT
  Age: 75 Year
  Sex: Female

DRUGS (2)
  1. TYSABRI [Suspect]
     Active Substance: NATALIZUMAB
     Indication: MULTIPLE SCLEROSIS
     Route: 065
     Dates: start: 20130719, end: 20151221
  2. TYSABRI [Suspect]
     Active Substance: NATALIZUMAB
     Route: 065
     Dates: start: 20161005

REACTIONS (9)
  - Lower limb fracture [Unknown]
  - Ankle fracture [Unknown]
  - Fall [Recovered/Resolved]
  - Tibia fracture [Recovered/Resolved]
  - Transient ischaemic attack [Recovered/Resolved]
  - Hand fracture [Unknown]
  - Wrist fracture [Unknown]
  - Urinary tract infection [Unknown]
  - Hip surgery [Unknown]

NARRATIVE: CASE EVENT DATE: 201601
